FAERS Safety Report 8901196 (Version 2)
Quarter: 2012Q4

REPORT INFORMATION
  Report Type: 
  Country: US (occurrence: US)
  Receive Date: 20121108
  Receipt Date: 20121126
  Transmission Date: 20130627
  Serious: Yes (Death)
  Sender: FDA-Public Use
  Company Number: US-009507513-1010USA02926B1

PATIENT

DRUGS (3)
  1. ISENTRESS [Suspect]
     Dosage: 800 mg, qd
     Route: 064
  2. TRUVADA [Suspect]
     Dosage: 1 DF, qd
     Route: 064
  3. KALETRA [Suspect]
     Dosage: 5 DF, qd
     Route: 064

REACTIONS (3)
  - Foetal disorder [Fatal]
  - Foetal growth restriction [Fatal]
  - Foetal exposure during pregnancy [Fatal]
